FAERS Safety Report 14476096 (Version 1)
Quarter: 2018Q1

REPORT INFORMATION
  Report Type: Spontaneous
  Country: US (occurrence: US)
  Receive Date: 20180201
  Receipt Date: 20180201
  Transmission Date: 20180509
  Serious: No
  Sender: FDA-Public Use
  Company Number: None

PATIENT
  Age: 53 Year
  Sex: Female

DRUGS (1)
  1. ENBREL [Suspect]
     Active Substance: ETANERCEPT
     Indication: PSORIATIC ARTHROPATHY
     Route: 058
     Dates: start: 20171201, end: 20180125

REACTIONS (9)
  - Muscular weakness [None]
  - Fatigue [None]
  - Hyperhidrosis [None]
  - Skin ulcer [None]
  - Arthralgia [None]
  - Oral mucosal blistering [None]
  - Headache [None]
  - Cold sweat [None]
  - Diabetes mellitus inadequate control [None]

NARRATIVE: CASE EVENT DATE: 20180201
